FAERS Safety Report 8163173-3 (Version None)
Quarter: 2012Q1

REPORT INFORMATION
  Report Type: 
  Country: None (occurrence: None)
  Receive Date: 20120224
  Receipt Date: 20110929
  Transmission Date: 20120608
  Serious: No
  Sender: FDA-Public Use
  Company Number: US-PFIZER INC-K201101140

PATIENT
  Sex: Female
  Weight: 72.562 kg

DRUGS (7)
  1. INSULIN [Concomitant]
     Indication: DIABETES MELLITUS
     Dosage: UNK
  2. FLECTOR [Suspect]
     Indication: ARTHRALGIA
     Dosage: UNK PATCH, UNK
     Route: 061
     Dates: start: 20110101, end: 20110901
  3. AMLODIPINE [Concomitant]
     Indication: HYPERTENSION
     Dosage: UNK
  4. LISINOPRIL [Concomitant]
     Indication: HYPERTENSION
     Dosage: UNK
  5. VITAMIN TAB [Concomitant]
     Indication: VITAMIN SUPPLEMENTATION
     Dosage: UNK
  6. LEVOTHROID [Concomitant]
     Indication: HYPOTHYROIDISM
     Dosage: UNK
  7. AMLODIPINE [Concomitant]
     Indication: PROPHYLAXIS

REACTIONS (1)
  - APPLICATION SITE BLEEDING [None]
